FAERS Safety Report 10065505 (Version 1)
Quarter: 2014Q2

REPORT INFORMATION
  Report Type: Spontaneous
  Country: US (occurrence: US)
  Receive Date: 20140408
  Receipt Date: 20140408
  Transmission Date: 20141212
  Serious: No
  Sender: FDA-Public Use
  Company Number: US-BAYER-2014-051726

PATIENT
  Sex: Female

DRUGS (1)
  1. ESTRADIOL HEMIHYDRATE [Suspect]
     Dosage: UNK
     Route: 062

REACTIONS (4)
  - Urticaria [None]
  - Nervousness [None]
  - Hyperhidrosis [None]
  - Hot flush [None]
